FAERS Safety Report 10186859 (Version 1)
Quarter: 2014Q2

REPORT INFORMATION
  Report Type: Spontaneous
  Country: US (occurrence: US)
  Receive Date: 20140522
  Receipt Date: 20140522
  Transmission Date: 20141212
  Serious: Yes (Hospitalization)
  Sender: FDA-Public Use
  Company Number: US-JNJFOC-20140508260

PATIENT
  Age: 80 Year
  Sex: Male
  Weight: 148.33 kg

DRUGS (2)
  1. IMODIUM [Suspect]
     Route: 065
  2. IMODIUM [Suspect]
     Indication: DIARRHOEA
     Route: 065

REACTIONS (3)
  - Haematuria [Recovered/Resolved]
  - Urinary retention [Recovered/Resolved]
  - Constipation [Unknown]
